FAERS Safety Report 19395681 (Version 1)
Quarter: 2021Q2

REPORT INFORMATION
  Report Type: Report from Study
  Country: DE (occurrence: DE)
  Receive Date: 20210609
  Receipt Date: 20210609
  Transmission Date: 20210717
  Serious: Yes (Hospitalization)
  Sender: FDA-Public Use
  Company Number: DE-TAKEDA-DE202019216

PATIENT
  Age: 61 Year
  Sex: Female
  Weight: 51 kg

DRUGS (8)
  1. TEDUGLUTIDE [Suspect]
     Active Substance: TEDUGLUTIDE
     Dosage: 0.26 MILLILITER, (1 X DAILY)QD
     Route: 058
  2. TEDUGLUTIDE [Suspect]
     Active Substance: TEDUGLUTIDE
     Indication: SHORT-BOWEL SYNDROME
     Dosage: 0.26 MILLILITER, 1X/DAY:QD
     Route: 058
     Dates: start: 20191031, end: 20200609
  3. TEDUGLUTIDE [Suspect]
     Active Substance: TEDUGLUTIDE
     Dosage: 0.26 MILLILITER, (1 X DAILY)QD
     Route: 058
  4. TEDUGLUTIDE [Suspect]
     Active Substance: TEDUGLUTIDE
     Indication: SHORT-BOWEL SYNDROME
     Dosage: 0.26 MILLILITER, 1X/DAY:QD
     Route: 058
     Dates: start: 20191031, end: 20200609
  5. TEDUGLUTIDE [Suspect]
     Active Substance: TEDUGLUTIDE
     Dosage: 0.26 MILLILITER, (1 X DAILY)QD
     Route: 058
  6. TEDUGLUTIDE [Suspect]
     Active Substance: TEDUGLUTIDE
     Indication: SHORT-BOWEL SYNDROME
     Dosage: 0.26 MILLILITER, 1X/DAY:QD
     Route: 058
     Dates: start: 20191031, end: 20200609
  7. TEDUGLUTIDE [Suspect]
     Active Substance: TEDUGLUTIDE
     Indication: SHORT-BOWEL SYNDROME
     Dosage: 0.26 MILLILITER, 1X/DAY:QD
     Route: 058
     Dates: start: 20191031, end: 20200609
  8. TEDUGLUTIDE [Suspect]
     Active Substance: TEDUGLUTIDE
     Dosage: 0.26 MILLILITER, (1 X DAILY)QD
     Route: 058

REACTIONS (3)
  - Catheter site inflammation [Recovered/Resolved]
  - Bursitis [Unknown]
  - Arthralgia [Unknown]

NARRATIVE: CASE EVENT DATE: 20200522
